FAERS Safety Report 5801876-3 (Version None)
Quarter: 2008Q3

REPORT INFORMATION
  Report Type: 
  Country: None (occurrence: None)
  Receive Date: 20080702
  Receipt Date: 20080616
  Transmission Date: 20090109
  Serious: Yes (Other)
  Sender: FDA-Public Use
  Company Number: 2008S1000214

PATIENT
  Sex: Female

DRUGS (2)
  1. CUBICIN [Suspect]
     Indication: ENTEROCOCCAL INFECTION
     Dosage: 350 MG;Q48H; IV
     Route: 042
  2. CUBICIN [Suspect]
     Indication: ENTEROCOCCAL SEPSIS
     Dosage: 350 MG;Q48H; IV
     Route: 042

REACTIONS (1)
  - CONVULSION [None]
